FAERS Safety Report 9787017 (Version 1)
Quarter: 2013Q4

REPORT INFORMATION
  Report Type: Spontaneous
  Country: GB (occurrence: GB)
  Receive Date: 20131227
  Receipt Date: 20131227
  Transmission Date: 20140711
  Serious: Yes (Hospitalization)
  Sender: FDA-Public Use
  Company Number: PHHY2013GB149654

PATIENT
  Age: 85 Year
  Sex: 0

DRUGS (16)
  1. AMOXICILLIN [Suspect]
     Dates: start: 20111128, end: 20111128
  2. CLARITHROMYCIN [Suspect]
     Dates: start: 20111128, end: 20111128
  3. GENTAMICIN [Suspect]
     Route: 042
     Dates: start: 20111128, end: 20111128
  4. CEFALEXIN [Suspect]
     Dosage: 250 MG, QHS
     Route: 048
  5. CEFALEXIN [Suspect]
     Dosage: 500 MG, QID
     Route: 048
     Dates: start: 20110622, end: 20110629
  6. NITROFURANTOIN [Suspect]
     Route: 048
     Dates: start: 20110929, end: 20111006
  7. CIPROFLOXACIN [Suspect]
     Dosage: 250 MG BID
     Route: 048
     Dates: start: 20110630, end: 20110707
  8. FLUCLOXACILLIN [Concomitant]
     Dosage: 500 MG QID
     Dates: start: 20101101
  9. NITROFURANTOIN [Concomitant]
     Dosage: 50 MG, QD
     Dates: end: 20110504
  10. NITROFURANTOIN [Concomitant]
     Dosage: 50 MG, UNK
     Dates: end: 20110419
  11. ERTAPENEM [Concomitant]
  12. TRIMETHOPRIM [Concomitant]
     Dosage: 100 MG, QD
  13. TRIMETHOPRIM [Concomitant]
  14. TRIMETHOPRIM [Concomitant]
  15. GENTAMICIN [Concomitant]
     Dosage: 240 MG, UNK
  16. CEFALEXIN [Concomitant]
     Dosage: 500 MG, ONCE/SINGLE

REACTIONS (1)
  - Clostridium difficile infection [Recovered/Resolved]
